FAERS Safety Report 16370981 (Version 1)
Quarter: 2019Q2

REPORT INFORMATION
  Report Type: Spontaneous
  Country: FR (occurrence: FR)
  Receive Date: 20190530
  Receipt Date: 20190530
  Transmission Date: 20190711
  Serious: Yes (Hospitalization)
  Sender: FDA-Public Use
  Company Number: FR-TOLMAR, INC.-2019FR005448

PATIENT

DRUGS (6)
  1. EFFERALGAN [Concomitant]
     Active Substance: ACETAMINOPHEN
     Dosage: UNK
     Route: 065
     Dates: start: 20180216
  2. RAMIPRIL. [Concomitant]
     Active Substance: RAMIPRIL
     Dosage: UNK
     Route: 065
     Dates: start: 1998
  3. MIRTAZAPINE. [Concomitant]
     Active Substance: MIRTAZAPINE
     Dosage: UNK
     Route: 065
     Dates: start: 20180131
  4. TAMOXIFEN [Suspect]
     Active Substance: TAMOXIFEN
     Indication: INVASIVE DUCTAL BREAST CARCINOMA
     Dosage: UNK
     Route: 048
     Dates: start: 20180124, end: 20190408
  5. ELIGARD [Suspect]
     Active Substance: LEUPROLIDE ACETATE
     Indication: INVASIVE DUCTAL BREAST CARCINOMA
     Route: 030
     Dates: start: 20180125
  6. EFFICORT LIPOPHILE [Concomitant]
     Dosage: UNK
     Route: 065
     Dates: start: 20180125

REACTIONS (4)
  - Incorrect route of product administration [Unknown]
  - Breast discharge [Recovering/Resolving]
  - Product use in unapproved indication [Unknown]
  - Product use issue [Unknown]

NARRATIVE: CASE EVENT DATE: 20180125
